FAERS Safety Report 7781146-7 (Version None)
Quarter: 2011Q3

REPORT INFORMATION
  Report Type: 
  Country: None (occurrence: None)
  Receive Date: 20110927
  Receipt Date: 20110922
  Transmission Date: 20111222
  Serious: Yes (Life-Threatening, Hospitalization)
  Sender: FDA-Public Use
  Company Number: US-ASTRAZENECA-2011SE51357

PATIENT
  Age: 22 Year
  Sex: Female

DRUGS (4)
  1. METHADONE HCL [Suspect]
     Route: 065
  2. PROZAC [Concomitant]
  3. SEROQUEL XR [Suspect]
     Indication: BIPOLAR DISORDER
     Route: 048
     Dates: start: 20110816
  4. HEROIN [Suspect]
     Route: 065

REACTIONS (5)
  - CARDIAC ARREST [None]
  - TORSADE DE POINTES [None]
  - CARDIOMYOPATHY [None]
  - DRUG DEPENDENCE [None]
  - AMNESIA [None]
